FAERS Safety Report 14418674 (Version 3)
Quarter: 2019Q1

REPORT INFORMATION
  Report Type: Report from Study
  Country: UA (occurrence: UA)
  Receive Date: 20180122
  Receipt Date: 20190131
  Transmission Date: 20190417
  Serious: Yes (Other)
  Sender: FDA-Public Use
  Company Number: UA-TEVA-2018-UA-848024

PATIENT
  Age: 6 Year
  Sex: Male
  Weight: 24.5 kg

DRUGS (9)
  1. LONQUEX [Suspect]
     Active Substance: LIPEGFILGRASTIM
     Indication: COLONY STIMULATING FACTOR THERAPY
     Dosage: LAST DOSE PRIOR TO SAE: 12-JAN-2018. THE EVENT OCCURRED DURING CYCLE 2.
     Route: 058
     Dates: start: 20180112
  2. DEXAMETHASONE. [Concomitant]
     Active Substance: DEXAMETHASONE
     Indication: PROPHYLAXIS OF NAUSEA AND VOMITING
     Dosage: 2 MILLIGRAM DAILY; ONCE
     Route: 042
     Dates: start: 20180111, end: 20180114
  3. LASIX [Concomitant]
     Active Substance: FUROSEMIDE
     Indication: ELECTROLYTE IMBALANCE
     Dosage: 1 ML DAILY;
     Route: 042
     Dates: start: 20180110, end: 20180114
  4. VINCRISTINE [Suspect]
     Active Substance: VINCRISTINE
     Indication: RHABDOMYOSARCOMA
     Dosage: CTX- DAY 1, 8 AND 15. LAST DOSE PRIOR TO SAE: 10-JAN-2018
     Route: 042
     Dates: start: 20180110
  5. ACTINOMYCIN D [Suspect]
     Active Substance: DACTINOMYCIN
     Indication: RHABDOMYOSARCOMA
     Dosage: 1.15 MILLIGRAM DAILY; ONCE. LAST DOSE PRIOR TO SAE: 10-JAN-2018
     Route: 042
     Dates: start: 20180110, end: 20190110
  6. LONQUEX [Suspect]
     Active Substance: LIPEGFILGRASTIM
     Route: 058
     Dates: start: 20171222
  7. ONDANSETRON [Concomitant]
     Active Substance: ONDANSETRON
     Dosage: 8 MILLIGRAM DAILY;
     Route: 042
     Dates: start: 20171221, end: 20171222
  8. ONDANSETRON [Concomitant]
     Active Substance: ONDANSETRON
     Indication: PROPHYLAXIS OF NAUSEA AND VOMITING
     Dosage: 8 MILLIGRAM DAILY;
     Route: 042
     Dates: start: 20180110, end: 20180112
  9. CYCLOPHOSPHAMIDE. [Suspect]
     Active Substance: CYCLOPHOSPHAMIDE
     Indication: RHABDOMYOSARCOMA
     Dosage: 930 MILLIGRAM DAILY; LAST DOSE PRIOR TO SAE: 11-JAN-2018
     Route: 042
     Dates: start: 20180110

REACTIONS (1)
  - Lymphopenia [Recovered/Resolved]

NARRATIVE: CASE EVENT DATE: 20180112
